FAERS Safety Report 26150078 (Version 1)
Quarter: 2025Q4

REPORT INFORMATION
  Report Type: Spontaneous
  Country: EU (occurrence: EU)
  Receive Date: 20251212
  Receipt Date: 20251212
  Transmission Date: 20260117
  Serious: Yes (Hospitalization, Other)
  Sender: SANOFI AVENTIS
  Company Number: None

PATIENT
  Age: 14 Year
  Sex: Female
  Weight: 68 kg

DRUGS (20)
  1. OMEPRAZOLE [Suspect]
     Active Substance: OMEPRAZOLE
     Indication: Prophylaxis
     Dosage: UNK
     Route: 048
     Dates: start: 20240819, end: 20240822
  2. KETOPROFEN [Suspect]
     Active Substance: KETOPROFEN
     Indication: Antiinflammatory therapy
     Dosage: 100 MG, TOTAL
     Route: 042
     Dates: start: 20240819, end: 20240819
  3. MIDAZOLAM [Suspect]
     Active Substance: MIDAZOLAM
     Indication: Anaesthesia
     Dosage: 2 MG, TOTAL
     Route: 042
     Dates: start: 20240819, end: 20240819
  4. DEXAMETHASONE [Suspect]
     Active Substance: DEXAMETHASONE
     Indication: Anaesthesia
     Dosage: 8 MG, TOTAL
     Route: 042
     Dates: start: 20240819, end: 20240819
  5. DICLOFENAC SODIUM [Suspect]
     Active Substance: DICLOFENAC SODIUM
     Indication: Antiinflammatory therapy
     Dosage: UNK
     Dates: start: 20240819, end: 20240822
  6. LOVENOX [Suspect]
     Active Substance: ENOXAPARIN SODIUM
     Indication: Anticoagulant therapy
     Dosage: UNK
     Route: 058
     Dates: start: 20240819, end: 20240822
  7. PRIMPERAN [Suspect]
     Active Substance: METOCLOPRAMIDE HYDROCHLORIDE
     Indication: Prophylaxis of nausea and vomiting
     Dosage: UNK
     Route: 048
     Dates: start: 20240819, end: 20240822
  8. ONDANSETRON HYDROCHLORIDE [Suspect]
     Active Substance: ONDANSETRON HYDROCHLORIDE
     Indication: Prophylaxis of nausea and vomiting
     Dosage: 8 DF, TOTAL
     Route: 042
     Dates: start: 20240819, end: 20240819
  9. ACETAMINOPHEN\CODEINE PHOSPHATE [Suspect]
     Active Substance: ACETAMINOPHEN\CODEINE PHOSPHATE
     Indication: Pain
     Dosage: UNK
     Route: 048
     Dates: start: 20240819, end: 20240822
  10. TRAMADOL HYDROCHLORIDE [Suspect]
     Active Substance: TRAMADOL HYDROCHLORIDE
     Indication: Anaesthesia
     Dosage: UNK
     Route: 048
     Dates: start: 20240819, end: 20240822
  11. SUFENTANIL [Suspect]
     Active Substance: SUFENTANIL
     Indication: Anaesthesia
     Dosage: 15 UG, TOTAL
     Route: 042
     Dates: start: 20240819, end: 20240819
  12. PROPOFOL [Suspect]
     Active Substance: PROPOFOL
     Indication: Anaesthesia
     Dosage: 20 MG, TOTAL
     Route: 042
     Dates: start: 20240819, end: 20240819
  13. KETAMINE [Suspect]
     Active Substance: KETAMINE
     Indication: Anaesthesia
     Dosage: 20 MG, TOTAL
     Route: 042
     Dates: start: 20240819, end: 20240819
  14. CISATRACURIUM [Suspect]
     Active Substance: CISATRACURIUM
     Indication: Anaesthesia
     Dosage: 10 MG, TOTAL
     Route: 042
     Dates: start: 20240819, end: 20240819
  15. SEVOFLURANE [Suspect]
     Active Substance: SEVOFLURANE
     Indication: Anaesthesia
     Dosage: UNK
     Route: 042
     Dates: start: 20240819, end: 20240819
  16. ROPIVACAINE HYDROCHLORIDE [Suspect]
     Active Substance: ROPIVACAINE HYDROCHLORIDE
     Indication: Anaesthesia
     Dosage: UNK
     Route: 042
     Dates: start: 20240819, end: 20240819
  17. DROPERIDOL [Suspect]
     Active Substance: DROPERIDOL
     Indication: Anaesthesia
     Dosage: 125 MG, TOTAL
     Route: 042
     Dates: start: 20240819, end: 20240819
  18. CEFAZOLIN SODIUM [Suspect]
     Active Substance: CEFAZOLIN SODIUM
     Indication: Antibiotic prophylaxis
     Dosage: 2.000G
     Route: 042
     Dates: start: 20240819, end: 20240819
  19. NICARDIPINE HYDROCHLORIDE [Suspect]
     Active Substance: NICARDIPINE HYDROCHLORIDE
     Indication: Product used for unknown indication
     Dosage: 80.000MG
     Route: 048
     Dates: start: 20240819, end: 20240819
  20. ACUPAN [Suspect]
     Active Substance: NEFOPAM HYDROCHLORIDE
     Indication: Pain
     Dosage: UNK
     Route: 058
     Dates: start: 20240819, end: 20240822

REACTIONS (4)
  - Urinary retention [Recovered/Resolved]
  - Anuria [Recovered/Resolved]
  - Constipation [Recovered/Resolved]
  - Hepatic cytolysis [Recovered/Resolved]

NARRATIVE: CASE EVENT DATE: 20240819
